FAERS Safety Report 19039540 (Version 1)
Quarter: 2021Q1

REPORT INFORMATION
  Report Type: Other
  Country: US (occurrence: US)
  Receive Date: 20210322
  Receipt Date: 20210322
  Transmission Date: 20210420
  Serious: Yes (Other)
  Sender: FDA-Public Use
  Company Number: US-ROCHE-2790450

PATIENT
  Sex: Female

DRUGS (22)
  1. ACTEMRA [Suspect]
     Active Substance: TOCILIZUMAB
     Indication: GIANT CELL ARTERITIS
     Route: 058
  2. ELIQUIS [Concomitant]
     Active Substance: APIXABAN
  3. PNEUMOCOCCAL CONJUGATE VACCINE [Concomitant]
     Active Substance: PNEUMOCOCCAL VACCINE POLYVALENT
  4. TETANUS TOXOID [Concomitant]
     Active Substance: TETANUS TOXOIDS
  5. DELTASONE [Concomitant]
     Active Substance: PREDNISONE
     Dosage: TAKE 20  MG TABLET 2.5 TABLET (TOTAL 50 MG) EVERY MORNING FOR 14 DAYS
     Route: 048
  6. ALDACTONE [Concomitant]
     Active Substance: SPIRONOLACTONE
     Route: 048
  7. COLECALCIFEROL [Concomitant]
     Active Substance: CHOLECALCIFEROL
     Route: 048
  8. ARIMIDEX [Concomitant]
     Active Substance: ANASTROZOLE
     Route: 048
  9. PRILOSEC [Concomitant]
     Active Substance: OMEPRAZOLE MAGNESIUM
     Route: 048
  10. TENORMIN [Concomitant]
     Active Substance: ATENOLOL
     Route: 048
  11. LEVOXYL [Concomitant]
     Active Substance: LEVOTHYROXINE SODIUM
     Route: 048
  12. COZAAR [Concomitant]
     Active Substance: LOSARTAN POTASSIUM
     Route: 048
  13. DELTASONE [Concomitant]
     Active Substance: PREDNISONE
     Dosage: TAKE 20  MG TABLET 4 M TABLET (TOTAL 80 MG)EVERY MORNING FOR 7 DAYS
     Route: 048
  14. DELTASONE [Concomitant]
     Active Substance: PREDNISONE
     Dosage: TAKE 20  MG TABLET 3 TABLET (TOTAL 60 MG) EVERY MORNING FOR 14 DAYS
     Route: 048
  15. PNEUMOCOCCAL POLYSACCHARIDE VACCINE [Concomitant]
     Active Substance: PNEUMOCOCCAL VACCINE POLYVALENT
  16. INFLUENZA A(H1N1)PDM09 VACCINE [Concomitant]
  17. ACTEMRA [Suspect]
     Active Substance: TOCILIZUMAB
  18. EYLEA [Concomitant]
     Active Substance: AFLIBERCEPT
     Dosage: OD EVERY 4?5 WEEKS
  19. LIPITOR [Concomitant]
     Active Substance: ATORVASTATIN CALCIUM
     Dosage: 1 TABLET AT BEDTIME EVERY NIGHT
     Route: 048
  20. CLEOCIN [Concomitant]
     Active Substance: CLINDAMYCIN PHOSPHATE
     Route: 048
  21. ZOLOFT [Concomitant]
     Active Substance: SERTRALINE HYDROCHLORIDE
     Route: 048
  22. QUADRIVALENT INFLUENZA VACCINE [Concomitant]

REACTIONS (1)
  - Blindness unilateral [Unknown]
